FAERS Safety Report 24223758 (Version 3)
Quarter: 2024Q3

REPORT INFORMATION
  Report Type: Report from Study
  Country: CL (occurrence: CL)
  Receive Date: 20240819
  Receipt Date: 20240919
  Transmission Date: 20241017
  Serious: Yes (Other)
  Sender: PFIZER
  Company Number: CL-PFIZER INC-202400237469

PATIENT
  Age: 21 Year
  Sex: Male

DRUGS (2)
  1. BRENTUXIMAB VEDOTIN [Suspect]
     Active Substance: BRENTUXIMAB VEDOTIN
     Indication: Hodgkin^s disease
     Dosage: 139 MG POST-HSCT, CYCLIC
     Route: 065
  2. BRENTUXIMAB VEDOTIN [Suspect]
     Active Substance: BRENTUXIMAB VEDOTIN
     Dosage: 83 MG POST-HSCT, CYCLIC
     Route: 065

REACTIONS (2)
  - Second primary malignancy [Unknown]
  - Myelodysplastic syndrome [Unknown]
